FAERS Safety Report 23065530 (Version 1)
Quarter: 2023Q4

REPORT INFORMATION
  Report Type: Spontaneous
  Country: US (occurrence: US)
  Receive Date: 20231013
  Receipt Date: 20231013
  Transmission Date: 20240109
  Serious: Yes (Other)
  Sender: FDA-Public Use
  Company Number: US-PRINSTON PHARMACEUTICAL INC.-2023PRN00508

PATIENT
  Age: 56 Year
  Sex: Male

DRUGS (1)
  1. HYDROCHLOROTHIAZIDE [Suspect]
     Active Substance: HYDROCHLOROTHIAZIDE

REACTIONS (5)
  - Encephalopathy [Recovered/Resolved]
  - Hyponatraemia [Recovered/Resolved]
  - Metabolic alkalosis [Recovered/Resolved]
  - Respiratory acidosis [Recovered/Resolved]
  - Respiratory failure [Recovered/Resolved]
